FAERS Safety Report 4689834-6 (Version None)
Quarter: 2005Q2

REPORT INFORMATION
  Report Type: 
  Country: None (occurrence: None)
  Receive Date: 20050608
  Receipt Date: 20050207
  Transmission Date: 20051028
  Serious: No
  Sender: FDA-Public Use
  Company Number: 2005-BP-01885BP

PATIENT
  Sex: Female

DRUGS (1)
  1. SPIRIVA [Suspect]
     Dosage: 18 MCG (18 MCG, 1 IN 1 D), NR
     Dates: start: 20040101

REACTIONS (4)
  - ABDOMINAL DISTENSION [None]
  - HOT FLUSH [None]
  - HYPERVENTILATION [None]
  - VULVOVAGINAL DRYNESS [None]
